FAERS Safety Report 9797080 (Version 1)
Quarter: 2014Q1

REPORT INFORMATION
  Report Type: Report from Study
  Country: US (occurrence: US)
  Receive Date: 20140106
  Receipt Date: 20140106
  Transmission Date: 20141002
  Serious: Yes (Disabling, Other)
  Sender: FDA-Public Use
  Company Number: PHEH2013US026692

PATIENT
  Age: 80 Year
  Sex: Male

DRUGS (1)
  1. EXELON PATCH [Suspect]
     Indication: DEMENTIA ALZHEIMER^S TYPE
     Dosage: UNK UKN, UNK
     Route: 062
     Dates: start: 20120815

REACTIONS (2)
  - General physical health deterioration [Not Recovered/Not Resolved]
  - Kidney infection [Not Recovered/Not Resolved]
